FAERS Safety Report 10744107 (Version 1)
Quarter: 2015Q1

REPORT INFORMATION
  Report Type: Spontaneous
  Country: US (occurrence: None)
  Receive Date: 20150126
  Receipt Date: 20150126
  Transmission Date: 20150721
  Serious: Yes (Death)
  Sender: FDA-Public Use
  Company Number: None

PATIENT
  Age: 82 Year
  Sex: Female
  Weight: 78 kg

DRUGS (1)
  1. XARELTO [Suspect]
     Active Substance: RIVAROXABAN
     Indication: PULMONARY EMBOLISM
     Dosage: 12/22/2015 (POSSIBLY EARLIER)
     Route: 048
     Dates: start: 20141222

REACTIONS (3)
  - Haemothorax [None]
  - Acute respiratory failure [None]
  - Cardio-respiratory arrest [None]

NARRATIVE: CASE EVENT DATE: 20141230
